FAERS Safety Report 25363643 (Version 1)
Quarter: 2025Q2

REPORT INFORMATION
  Report Type: Spontaneous
  Country: JP (occurrence: JP)
  Receive Date: 20250527
  Receipt Date: 20250527
  Transmission Date: 20250717
  Serious: Yes (Other)
  Sender: AMGEN
  Company Number: JP-AMGEN-JPNSP2025098928

PATIENT
  Age: 6 Decade
  Sex: Male

DRUGS (7)
  1. BLINATUMOMAB [Suspect]
     Active Substance: BLINATUMOMAB
     Indication: Philadelphia positive acute lymphocytic leukaemia
     Route: 065
  2. PREDNISOLONE [Concomitant]
     Active Substance: PREDNISOLONE
  3. DASATINIB [Concomitant]
     Active Substance: DASATINIB
  4. METHOTREXATE [Concomitant]
     Active Substance: METHOTREXATE
  5. DEXAMETHASONE [Concomitant]
     Active Substance: DEXAMETHASONE
  6. PONATINIB [Concomitant]
     Active Substance: PONATINIB
  7. CYTARABINE [Concomitant]
     Active Substance: CYTARABINE

REACTIONS (1)
  - CSF lymphocyte count increased [Unknown]
